FAERS Safety Report 6265054-9 (Version None)
Quarter: 2009Q3

REPORT INFORMATION
  Report Type: 
  Country: None (occurrence: None)
  Receive Date: 20090713
  Receipt Date: 20090629
  Transmission Date: 20100115
  Serious: Yes (Other)
  Sender: FDA-Public Use
  Company Number: GB-PFIZER INC-2009233153

PATIENT
  Age: 75 Year

DRUGS (6)
  1. LYRICA [Suspect]
     Indication: BACK PAIN
     Dosage: 25 MG, 2X/DAY
     Route: 048
     Dates: start: 20090211, end: 20090623
  2. ALENDRONIC ACID [Concomitant]
     Dosage: 70 MG, UNK
  3. CALCICHEW-D3 [Concomitant]
  4. LANSOPRAZOLE [Concomitant]
     Dosage: 30 MG, UNK
  5. SALBUTAMOL [Concomitant]
     Route: 055
  6. SERETIDE [Concomitant]
     Dosage: 250 UG, UNK
     Route: 055

REACTIONS (3)
  - BLISTER [None]
  - SCAR [None]
  - SKIN LESION [None]
